FAERS Safety Report 15997609 (Version 2)
Quarter: 2019Q4

REPORT INFORMATION
  Report Type: Spontaneous
  Country: US (occurrence: US)
  Receive Date: 20190222
  Receipt Date: 20191031
  Transmission Date: 20200122
  Serious: Yes (Hospitalization, Other)
  Sender: FDA-Public Use
  Company Number: US-TEVA-2007V-01015

PATIENT
  Age: 59 Year
  Sex: Female

DRUGS (3)
  1. DILTIAZEM HYDROCHLORIDE (PUREPAC) [Suspect]
     Active Substance: DILTIAZEM HYDROCHLORIDE
     Indication: PRODUCT USED FOR UNKNOWN INDICATION
     Route: 048
  2. VALIUM [Concomitant]
     Active Substance: DIAZEPAM
     Indication: OVERDOSE
     Route: 048
  3. DIAZEPAM. [Suspect]
     Active Substance: DIAZEPAM
     Indication: OVERDOSE
     Dosage: FIVE TABLETS
     Route: 065

REACTIONS (20)
  - Vomiting [Unknown]
  - Thrombosis [Unknown]
  - Pneumonia aspiration [Unknown]
  - Ventricular fibrillation [Unknown]
  - Intellectual disability [Recovered/Resolved]
  - Neuropathy peripheral [Unknown]
  - Endotracheal intubation [Unknown]
  - Hypotension [Unknown]
  - Overdose [Unknown]
  - Respiratory distress [Unknown]
  - Bradycardia [Unknown]
  - Renal impairment [Recovered/Resolved]
  - Gastric haemorrhage [Unknown]
  - Cardiac arrest [Unknown]
  - Acidosis [Unknown]
  - Resuscitation [Unknown]
  - Pancreatitis [Unknown]
  - Oliguria [Unknown]
  - Unresponsive to stimuli [Unknown]
  - Nausea [Unknown]
